FAERS Safety Report 15457673 (Version 1)
Quarter: 2018Q4

REPORT INFORMATION
  Report Type: Spontaneous
  Country: SE (occurrence: SE)
  Receive Date: 20181003
  Receipt Date: 20181003
  Transmission Date: 20190204
  Serious: Yes (Hospitalization)
  Sender: FDA-Public Use
  Company Number: SE-TEVA-2018-SE-960390

PATIENT
  Age: 83 Year
  Sex: Female

DRUGS (19)
  1. TROMBYL [Concomitant]
     Active Substance: ASPIRIN
  2. GABAPENTIN 1A FARMA [Concomitant]
     Active Substance: GABAPENTIN
  3. STESOLID [Concomitant]
     Active Substance: DIAZEPAM
  4. PANODIL FORTE [Concomitant]
  5. SAROTEN [Concomitant]
     Active Substance: AMITRIPTYLINE
  6. DUPHALAC [Concomitant]
     Active Substance: LACTULOSE
  7. ATORVASTATIN [Concomitant]
     Active Substance: ATORVASTATIN
  8. PAPAVERINE [Concomitant]
     Active Substance: PAPAVERINE
  9. CILAXORAL [Concomitant]
     Active Substance: SODIUM PICOSULFATE
  10. MORPHINE [Concomitant]
     Active Substance: MORPHINE
  11. MATRIFEN [Concomitant]
     Active Substance: FENTANYL
  12. PRIMPERAN [Concomitant]
     Active Substance: METOCLOPRAMIDE HYDROCHLORIDE
  13. INOLAXOL [Concomitant]
     Active Substance: HERBALS\KARAYA GUM
  14. OVESTERIN [Concomitant]
     Active Substance: ESTRIOL
  15. CALCICHEW-D3 CITRON [Concomitant]
  16. OMEPRAZOLE. [Concomitant]
     Active Substance: OMEPRAZOLE
  17. DIMETIKON MEDA [Concomitant]
  18. METOPROLOL. [Suspect]
     Active Substance: METOPROLOL
     Dosage: 200 MILLIGRAM DAILY;
     Route: 065
  19. OLANZAPINE. [Concomitant]
     Active Substance: OLANZAPINE

REACTIONS (5)
  - Oedema peripheral [Unknown]
  - Chronotropic incompetence [Unknown]
  - Cardiac failure [Unknown]
  - Overdose [Unknown]
  - General physical health deterioration [Unknown]

NARRATIVE: CASE EVENT DATE: 20180628
